FAERS Safety Report 8077298-4 (Version None)
Quarter: 2012Q1

REPORT INFORMATION
  Report Type: 
  Country: None (occurrence: None)
  Receive Date: 20120127
  Receipt Date: 20120113
  Transmission Date: 20120608
  Serious: Yes (Other)
  Sender: FDA-Public Use
  Company Number: CA-JNJFOC-20120111347

PATIENT
  Sex: Male
  Weight: 109 kg

DRUGS (3)
  1. MESALAMINE [Concomitant]
  2. IMURAN [Concomitant]
  3. REMICADE [Suspect]
     Indication: COLITIS ULCERATIVE
     Route: 042
     Dates: start: 20080101

REACTIONS (3)
  - BACK INJURY [None]
  - NECK INJURY [None]
  - LOSS OF CONSCIOUSNESS [None]
